FAERS Safety Report 8151177-6 (Version None)
Quarter: 2012Q1

REPORT INFORMATION
  Report Type: 
  Country: None (occurrence: None)
  Receive Date: 20120220
  Receipt Date: 20120213
  Transmission Date: 20120608
  Serious: Yes (Congenital Anomaly, Other)
  Sender: FDA-Public Use
  Company Number: DE-GLAXOSMITHKLINE-D0074460A

PATIENT
  Sex: Female

DRUGS (4)
  1. FRISIUM [Suspect]
     Indication: EPILEPSY
     Dosage: 2.5MG THREE TIMES PER DAY
     Route: 064
     Dates: start: 20101217, end: 20110211
  2. FOLIC ACID [Concomitant]
     Indication: PROPHYLAXIS OF NEURAL TUBE DEFECT
     Dosage: 5MG PER DAY
     Route: 064
     Dates: start: 20100708
  3. LAMOTRIGINE [Suspect]
     Indication: EPILEPSY
     Dosage: 150MG PER DAY
     Route: 064
     Dates: start: 20100708, end: 20110211
  4. THYROXIN [Concomitant]
     Indication: HYPOTHYROIDISM
     Route: 064
     Dates: start: 20100101, end: 20110101

REACTIONS (13)
  - FEEDING DISORDER NEONATAL [None]
  - FOETAL HEART RATE DECELERATION [None]
  - HYPOGLYCAEMIA NEONATAL [None]
  - CEREBRAL HAEMORRHAGE [None]
  - MYOCLONUS [None]
  - ANAEMIA NEONATAL [None]
  - HYPERBILIRUBINAEMIA NEONATAL [None]
  - CARDIAC ANEURYSM [None]
  - VENTRICULAR SEPTAL DEFECT [None]
  - NEONATAL RESPIRATORY DISTRESS SYNDROME [None]
  - ATRIAL SEPTAL DEFECT [None]
  - FOETAL EXPOSURE DURING PREGNANCY [None]
  - CONGENITAL CHOROID PLEXUS CYST [None]
